FAERS Safety Report 10008886 (Version 2)
Quarter: 2014Q1

REPORT INFORMATION
  Report Type: Spontaneous
  Country: US (occurrence: US)
  Receive Date: 20140312
  Receipt Date: 20140312
  Transmission Date: 20141002
  Serious: No
  Sender: FDA-Public Use
  Company Number: US-INCYTE CORPORATION-2012IN000393

PATIENT
  Age: 78 Year
  Sex: Female
  Weight: 55.33 kg

DRUGS (4)
  1. JAKAFI [Suspect]
     Indication: MYELOFIBROSIS
     Dosage: 20 MG, BID
     Route: 048
     Dates: start: 201201
  2. SIMVASTATIN [Concomitant]
     Dosage: 40 MG, QD
     Route: 048
  3. CARVEDILOL [Concomitant]
     Indication: PROPHYLAXIS
     Dosage: 6.25 MG, BID
     Route: 048
  4. FUROSEMIDE [Concomitant]
     Dosage: 20 MG, QD
     Route: 048

REACTIONS (3)
  - Stomatitis [Not Recovered/Not Resolved]
  - Tongue coated [Not Recovered/Not Resolved]
  - Hot flush [Not Recovered/Not Resolved]
